FAERS Safety Report 10003810 (Version 2)
Quarter: 2014Q1

REPORT INFORMATION
  Report Type: Spontaneous
  Country: US (occurrence: US)
  Receive Date: 20140312
  Receipt Date: 20140312
  Transmission Date: 20141002
  Serious: Yes (Hospitalization, Congenital Anomaly, Other)
  Sender: FDA-Public Use
  Company Number: US-ABBVIE-14P-163-1196264-00

PATIENT
  Age: 28 Year
  Sex: Male

DRUGS (6)
  1. VALPROATE SEMISODIUM [Suspect]
     Indication: AFFECTIVE DISORDER
  2. VALPROATE SEMISODIUM [Suspect]
     Indication: ATTENTION DEFICIT/HYPERACTIVITY DISORDER
  3. OLANZAPINE [Concomitant]
     Indication: CARNITINE DEFICIENCY
  4. OLANZAPINE [Concomitant]
  5. LORAZEPAM [Concomitant]
     Indication: PRODUCT USED FOR UNKNOWN INDICATION
  6. CITALOPRAM [Concomitant]
     Indication: CARNITINE DEFICIENCY

REACTIONS (5)
  - Carnitine deficiency [Recovering/Resolving]
  - Hyperammonaemia [Recovered/Resolved]
  - Irritability [Recovering/Resolving]
  - Affective disorder [Recovering/Resolving]
  - Condition aggravated [Recovering/Resolving]
